FAERS Safety Report 6573863-1 (Version None)
Quarter: 2010Q1

REPORT INFORMATION
  Report Type: 
  Country: None (occurrence: None)
  Receive Date: 20100208
  Receipt Date: 20100125
  Transmission Date: 20100710
  Serious: Yes (Hospitalization)
  Sender: FDA-Public Use
  Company Number: AU-MYLANLABS-2010S1001222

PATIENT
  Age: 67 Year
  Sex: Female
  Weight: 85 kg

DRUGS (14)
  1. BLINDED STUDY MEDICATION [Suspect]
     Indication: RHEUMATOID ARTHRITIS
     Dates: start: 20090925
  2. METFORMIN HCL [Suspect]
     Indication: TYPE 2 DIABETES MELLITUS
     Route: 048
     Dates: start: 20020101
  3. METHOTREXATE SODIUM [Suspect]
     Indication: RHEUMATOID ARTHRITIS
     Route: 048
     Dates: start: 20010101
  4. GLICLAZIDE [Suspect]
     Indication: TYPE 2 DIABETES MELLITUS
     Route: 048
     Dates: start: 20020101
  5. ENDEP [Suspect]
     Indication: FIBROMYALGIA
     Route: 048
     Dates: start: 20020101, end: 20100102
  6. FOLIC ACID [Concomitant]
     Dates: start: 20010101
  7. B12-VITAMIIN [Concomitant]
     Dates: start: 20010101
  8. PARIET [Concomitant]
     Dates: start: 20091203
  9. PREDNISOLONE [Concomitant]
     Dates: start: 20010101
  10. LEVOTHYROXINE SODIUM [Concomitant]
     Dates: start: 20060101
  11. FISH OIL [Concomitant]
     Dates: start: 20060101
  12. FERROUS SULFATE TAB [Concomitant]
     Dates: start: 20090801
  13. MULTI-VITAMINS [Concomitant]
     Dates: start: 20080101
  14. LIPITOR [Concomitant]
     Dates: start: 20060101

REACTIONS (2)
  - BILE DUCT STONE [None]
  - PANCREATITIS [None]
